FAERS Safety Report 16949174 (Version 4)
Quarter: 2020Q2

REPORT INFORMATION
  Report Type: Report from Study
  Country: None (occurrence: US)
  Receive Date: 20191023
  Receipt Date: 20200407
  Transmission Date: 20200713
  Serious: Yes (Hospitalization, Other)
  Sender: FDA-Public Use
  Company Number: US-ABBVIE-19K-163-2968706-00

PATIENT
  Sex: Female

DRUGS (5)
  1. HUMIRA [Suspect]
     Active Substance: ADALIMUMAB
     Dosage: CITRATE FREE
     Route: 058
  2. HUMIRA [Suspect]
     Active Substance: ADALIMUMAB
     Dosage: CITRATE FREE
     Route: 058
  3. HUMIRA [Suspect]
     Active Substance: ADALIMUMAB
     Indication: CROHN^S DISEASE
     Dosage: CITRATE FREE
     Route: 058
     Dates: start: 20190518
  4. HUMIRA [Suspect]
     Active Substance: ADALIMUMAB
     Dosage: CITRATE FREE
     Route: 058
  5. IMODIUM [Suspect]
     Active Substance: LOPERAMIDE HYDROCHLORIDE
     Indication: DIARRHOEA
     Route: 065

REACTIONS (19)
  - Sepsis [Unknown]
  - Arthritis [Unknown]
  - Back pain [Unknown]
  - Headache [Unknown]
  - Diarrhoea [Not Recovered/Not Resolved]
  - Abdominal pain upper [Unknown]
  - Alopecia [Unknown]
  - Pain in extremity [Unknown]
  - Food intolerance [Unknown]
  - Breast mass [Unknown]
  - Scoliosis [Unknown]
  - Sciatica [Unknown]
  - Fluid retention [Not Recovered/Not Resolved]
  - Nodule [Unknown]
  - Injection site pain [Unknown]
  - Small intestinal perforation [Unknown]
  - Weight decreased [Unknown]
  - Injection site papule [Recovered/Resolved]
  - Injection site bruising [Recovered/Resolved]
